FAERS Safety Report 8462283-0 (Version None)
Quarter: 2012Q2

REPORT INFORMATION
  Report Type: 
  Country: None (occurrence: None)
  Receive Date: 20120625
  Receipt Date: 20120618
  Transmission Date: 20120825
  Serious: Yes (Hospitalization)
  Sender: FDA-Public Use
  Company Number: US-BAYER-2012-061006

PATIENT
  Age: 36 Year
  Sex: Female

DRUGS (7)
  1. KETOCONAZOLE [Concomitant]
     Dosage: 2 %, UNK
     Dates: start: 20090614
  2. KETOCONAZOLE [Concomitant]
     Dosage: 2 %, UNK
     Dates: start: 20090614
  3. DILAUDID [Concomitant]
  4. YAZ [Suspect]
     Dosage: UNK UNK, QD
  5. DROSPIRENONE AND ETHINYL ESTRADIOL [Suspect]
  6. ZOFRAN [Concomitant]
  7. KETOCONAZOLE [Concomitant]

REACTIONS (1)
  - PULMONARY EMBOLISM [None]
